FAERS Safety Report 17149886 (Version 1)
Quarter: 2019Q4

REPORT INFORMATION
  Report Type: Spontaneous
  Country: IT (occurrence: IT)
  Receive Date: 20191213
  Receipt Date: 20191213
  Transmission Date: 20200122
  Serious: Yes (Other)
  Sender: FDA-Public Use
  Company Number: NVSC2019IT066497

PATIENT
  Age: 66 Year
  Sex: Female

DRUGS (3)
  1. LOW MOLECULAR WEIGHT HEPARIN [Suspect]
     Active Substance: UNSPECIFIED INGREDIENT
     Indication: INTERNATIONAL NORMALISED RATIO INCREASED
     Dosage: UNK
     Route: 065
  2. WARFARIN [Interacting]
     Active Substance: WARFARIN
     Indication: CENTRAL NERVOUS SYSTEM INFLAMMATION
     Dosage: UNK
     Route: 065
  3. METHYLPREDNISOLONE. [Suspect]
     Active Substance: METHYLPREDNISOLONE
     Indication: CENTRAL NERVOUS SYSTEM INFLAMMATION
     Dosage: 1000 MG
     Route: 042

REACTIONS (3)
  - International normalised ratio increased [Unknown]
  - Product use in unapproved indication [Unknown]
  - Drug interaction [Unknown]
